FAERS Safety Report 4912887-4 (Version None)
Quarter: 2006Q1

REPORT INFORMATION
  Report Type: 
  Country: None (occurrence: None)
  Receive Date: 20060215
  Receipt Date: 20060208
  Transmission Date: 20060701
  Serious: Yes (Hospitalization)
  Sender: FDA-Public Use
  Company Number: FR-BRISTOL-MYERS SQUIBB COMPANY-13277207

PATIENT
  Age: 89 Year
  Sex: Male

DRUGS (7)
  1. SINEMET [Suspect]
     Indication: PARKINSON'S DISEASE
     Route: 048
     Dates: start: 20051206
  2. ROVAMYCINE [Suspect]
     Indication: GENERAL PHYSICAL HEALTH DETERIORATION
     Dates: start: 20051220, end: 20060103
  3. ROVAMYCINE [Suspect]
     Indication: HYPOTHERMIA
     Dates: start: 20051220, end: 20060103
  4. ROVAMYCINE [Suspect]
     Indication: LUNG DISORDER
     Dates: start: 20051220, end: 20060103
  5. ROCEPHIN [Suspect]
     Indication: GENERAL PHYSICAL HEALTH DETERIORATION
     Route: 042
     Dates: start: 20051221, end: 20060104
  6. ROCEPHIN [Suspect]
     Indication: HYPOTHERMIA
     Route: 042
     Dates: start: 20051221, end: 20060104
  7. ROCEPHIN [Suspect]
     Indication: LUNG DISORDER
     Route: 042
     Dates: start: 20051221, end: 20060104

REACTIONS (6)
  - DERMATITIS ALLERGIC [None]
  - ERYTHEMA [None]
  - GENERAL PHYSICAL HEALTH DETERIORATION [None]
  - HYPOTHERMIA [None]
  - LUNG DISORDER [None]
  - RASH PRURITIC [None]
